FAERS Safety Report 25757345 (Version 1)
Quarter: 2025Q3

REPORT INFORMATION
  Report Type: Spontaneous
  Country: EU (occurrence: EU)
  Receive Date: 20250903
  Receipt Date: 20250903
  Transmission Date: 20251020
  Serious: Yes (Hospitalization, Other)
  Sender: SANOFI AVENTIS
  Company Number: None

PATIENT
  Age: 30 Year
  Sex: Male
  Weight: 105.6 kg

DRUGS (4)
  1. INSULIN GLARGINE [Suspect]
     Active Substance: INSULIN GLARGINE
     Indication: Performance enhancing product use
     Route: 058
     Dates: start: 20250201, end: 20250803
  2. SOMATROPIN [Concomitant]
     Active Substance: SOMATROPIN
     Indication: Performance enhancing product use
     Route: 058
     Dates: start: 20250201, end: 20250803
  3. TESTOSTERONE [Concomitant]
     Active Substance: TESTOSTERONE
     Indication: Performance enhancing product use
     Dates: start: 20230101, end: 20250803
  4. CLENBUTEROL [Concomitant]
     Active Substance: CLENBUTEROL
     Indication: Performance enhancing product use
     Route: 048
     Dates: end: 20250803

REACTIONS (5)
  - Cardiac failure [Not Recovered/Not Resolved]
  - Atrial fibrillation [Not Recovered/Not Resolved]
  - Hepatic cytolysis [Recovering/Resolving]
  - Cholestasis [Recovering/Resolving]
  - Hypertension [Not Recovered/Not Resolved]

NARRATIVE: CASE EVENT DATE: 20250804
